FAERS Safety Report 7658674-8 (Version None)
Quarter: 2011Q3

REPORT INFORMATION
  Report Type: 
  Country: None (occurrence: None)
  Receive Date: 20110805
  Receipt Date: 20110727
  Transmission Date: 20111222
  Serious: Yes (Hospitalization)
  Sender: FDA-Public Use
  Company Number: FR-PFIZER INC-2011177404

PATIENT
  Age: 85 Year
  Sex: Male

DRUGS (6)
  1. DIGOXIN [Concomitant]
     Dosage: 0.5 DF, DAILY
     Route: 048
  2. METFORMIN [Concomitant]
     Dosage: 1000 MG DAILY
  3. PANTOPRAZOLE [Suspect]
     Dosage: 20 MG DAILY
     Route: 048
     Dates: end: 20090120
  4. PREVISCAN [Suspect]
     Dosage: 0.5 DF, DAILY
     Route: 048
  5. LASIX [Suspect]
     Dosage: 40 MG DAILY
     Route: 048
  6. PREVISCAN [Suspect]
     Dosage: 0.25 DF, DAILY
     Route: 048

REACTIONS (3)
  - OEDEMA PERIPHERAL [None]
  - DYSPNOEA [None]
  - INTERNATIONAL NORMALISED RATIO INCREASED [None]
